FAERS Safety Report 9265912 (Version 1)
Quarter: 2013Q2

REPORT INFORMATION
  Report Type: Spontaneous
  Country: US (occurrence: US)
  Receive Date: 20130501
  Receipt Date: 20130501
  Transmission Date: 20140414
  Serious: Yes (Other)
  Sender: FDA-Public Use
  Company Number: CHPA2013US007124

PATIENT
  Age: 75 Year
  Sex: Female

DRUGS (2)
  1. EXCEDRIN PM [Suspect]
     Indication: INSOMNIA
     Dosage: 2 DF, QD
     Route: 048
  2. TYLENOL PM [Concomitant]

REACTIONS (4)
  - Hypertension [Recovering/Resolving]
  - Therapeutic response unexpected [Unknown]
  - Off label use [Unknown]
  - Incorrect drug administration duration [Unknown]
